FAERS Safety Report 8198665-4 (Version None)
Quarter: 2012Q1

REPORT INFORMATION
  Report Type: 
  Country: None (occurrence: None)
  Receive Date: 20120309
  Receipt Date: 20120130
  Transmission Date: 20120608
  Serious: No
  Sender: FDA-Public Use
  Company Number: US-AMGEN-USASP2011040133

PATIENT
  Age: 90 Year
  Sex: Female
  Weight: 39.5 kg

DRUGS (11)
  1. PROLIA [Suspect]
     Indication: OSTEOPOROSIS POSTMENOPAUSAL
     Dosage: 60 MG, Q6MO
     Route: 058
     Dates: start: 20110805
  2. SULAR [Concomitant]
     Dosage: UNK UNK, QD
  3. POTASSIUM [Concomitant]
     Dosage: UNK
  4. CATAPRES [Concomitant]
     Dosage: UNK
  5. LANOXIN [Concomitant]
     Dosage: 1 MG, QD
  6. LANOXIN [Concomitant]
  7. PROPRANOLOL [Concomitant]
     Dosage: UNK
  8. ZOCOR [Concomitant]
     Dosage: UNK UNK, QD
  9. ASPIRIN [Concomitant]
     Dosage: 1 MG, QD
  10. CALCIUM CARBONATE [Concomitant]
     Dosage: UNK
  11. DYAZIDE [Concomitant]
     Dosage: UNK

REACTIONS (3)
  - PRURITUS [None]
  - OEDEMA PERIPHERAL [None]
  - CONSTIPATION [None]
